FAERS Safety Report 7483720-4 (Version None)
Quarter: 2011Q2

REPORT INFORMATION
  Report Type: 
  Country: None (occurrence: None)
  Receive Date: 20110509
  Receipt Date: 20110427
  Transmission Date: 20111010
  Serious: Yes (Hospitalization)
  Sender: FDA-Public Use
  Company Number: 1000020671

PATIENT
  Sex: Female

DRUGS (1)
  1. ESCITALOPRAM [Suspect]

REACTIONS (4)
  - GASTRIC ULCER [None]
  - DUODENAL ULCER [None]
  - UNEVALUABLE EVENT [None]
  - FATIGUE [None]
